FAERS Safety Report 7779345-3 (Version None)
Quarter: 2011Q3

REPORT INFORMATION
  Report Type: 
  Country: None (occurrence: None)
  Receive Date: 20110926
  Receipt Date: 20090121
  Transmission Date: 20111222
  Serious: Yes (Hospitalization)
  Sender: FDA-Public Use
  Company Number: PHHY2010TW71994

PATIENT
  Sex: Male

DRUGS (1)
  1. TASIGNA [Suspect]
     Indication: CHRONIC MYELOID LEUKAEMIA
     Dosage: 600 MG, UNK
     Route: 048

REACTIONS (8)
  - PNEUMONIA [None]
  - CEREBROVASCULAR ACCIDENT [None]
  - DYSPHAGIA [None]
  - DISCOMFORT [None]
  - PRODUCTIVE COUGH [None]
  - FALL [None]
  - PYREXIA [None]
  - CERVICAL VERTEBRAL FRACTURE [None]
